FAERS Safety Report 6820598-3 (Version None)
Quarter: 2010Q3

REPORT INFORMATION
  Report Type: 
  Country: None (occurrence: None)
  Receive Date: 20100707
  Receipt Date: 20100628
  Transmission Date: 20110219
  Serious: Yes (Other)
  Sender: FDA-Public Use
  Company Number: US-PFIZER INC-2010057390

PATIENT
  Sex: Male
  Weight: 68.027 kg

DRUGS (2)
  1. CHANTIX [Suspect]
     Indication: SMOKING CESSATION THERAPY
     Dosage: 1 MG, 2X/DAY
     Route: 048
     Dates: start: 20100428
  2. PROZAC [Concomitant]
     Indication: DEPRESSION
     Dosage: 40 MG, UNK

REACTIONS (2)
  - BLISTER [None]
  - RASH [None]
